FAERS Safety Report 12589121 (Version 1)
Quarter: 2016Q3

REPORT INFORMATION
  Report Type: Spontaneous
  Country: US (occurrence: US)
  Receive Date: 20160725
  Receipt Date: 20160725
  Transmission Date: 20161109
  Serious: No
  Sender: FDA-Public Use
  Company Number: US-TEIKOKU PHARMA USA-TPU2016-00485

PATIENT
  Sex: Female
  Weight: 85.81 kg

DRUGS (1)
  1. LIDOCAINE PATCH [Suspect]
     Active Substance: LIDOCAINE
     Indication: ARTHRITIS
     Dosage: APPLY 1 PATCH TO ARTHRITIC AREA ON NECK, HAND AND BACK
     Route: 061
     Dates: start: 201605, end: 201605

REACTIONS (1)
  - Drug ineffective for unapproved indication [Unknown]
